FAERS Safety Report 4991860-4 (Version None)
Quarter: 2006Q2

REPORT INFORMATION
  Report Type: 
  Country: None (occurrence: None)
  Receive Date: 20060504
  Receipt Date: 20060501
  Transmission Date: 20061013
  Serious: Yes (Hospitalization)
  Sender: FDA-Public Use
  Company Number: US-SANOFI-SYNTHELABO-F01200601152

PATIENT
  Sex: Female

DRUGS (4)
  1. OXALIPLATIN [Suspect]
     Indication: COLON CANCER STAGE III
     Route: 042
     Dates: start: 20060221, end: 20060221
  2. FLUOROURACIL [Suspect]
     Route: 042
     Dates: start: 20060221, end: 20060221
  3. LEUCOVORIN [Suspect]
     Route: 042
     Dates: start: 20060221, end: 20060221
  4. AVASTIN [Suspect]
     Route: 042
     Dates: start: 20060221, end: 20060221

REACTIONS (5)
  - DEHYDRATION [None]
  - DIARRHOEA [None]
  - DIZZINESS [None]
  - ENTERITIS [None]
  - SYNCOPE [None]
